FAERS Safety Report 4611376-4 (Version None)
Quarter: 2005Q2

REPORT INFORMATION
  Report Type: 
  Country: None (occurrence: None)
  Receive Date: 20050311
  Receipt Date: 20050121
  Transmission Date: 20051028
  Serious: No
  Sender: FDA-Public Use
  Company Number: 2005-BP-01153BP

PATIENT
  Sex: Female

DRUGS (5)
  1. SPIRIVA [Suspect]
     Indication: CHRONIC OBSTRUCTIVE PULMONARY DISEASE
     Dosage: 18 MCG (18 MCG, 1 CAPSULES QD), IH
     Route: 055
     Dates: start: 20050101
  2. TIAZAC [Concomitant]
  3. LEVOXYL [Concomitant]
  4. SALAGEN [Concomitant]
  5. ACETYLSALICYLIC ACID SRT [Concomitant]

REACTIONS (3)
  - DRY MOUTH [None]
  - PAIN IN EXTREMITY [None]
  - VAGINAL PAIN [None]
